FAERS Safety Report 12991286 (Version 2)
Quarter: 2016Q4

REPORT INFORMATION
  Report Type: Spontaneous
  Country: US (occurrence: US)
  Receive Date: 20161201
  Receipt Date: 20161207
  Transmission Date: 20170207
  Serious: No
  Sender: FDA-Public Use
  Company Number: PHEH2016US031233

PATIENT
  Sex: Female

DRUGS (1)
  1. COSENTYX [Suspect]
     Active Substance: SECUKINUMAB
     Indication: PSORIASIS
     Dosage: 300 MG, ONCE A WEEK
     Route: 058

REACTIONS (5)
  - Respiratory tract congestion [Unknown]
  - Drug ineffective [Unknown]
  - Bronchitis [Unknown]
  - Headache [Unknown]
  - Cough [Unknown]
